FAERS Safety Report 5951484-9 (Version None)
Quarter: 2008Q4

REPORT INFORMATION
  Report Type: 
  Country: None (occurrence: None)
  Receive Date: 20081113
  Receipt Date: 20081106
  Transmission Date: 20090506
  Serious: Yes (Hospitalization)
  Sender: FDA-Public Use
  Company Number: JP-ABBOTT-08P-087-0486767-00

PATIENT
  Sex: Female

DRUGS (3)
  1. LEUPROLIDE ACETATE [Suspect]
     Indication: UTERINE LEIOMYOMA
     Route: 058
     Dates: start: 20080624
  2. FERROUS CITRATE [Concomitant]
     Indication: ANAEMIA
     Route: 048
     Dates: end: 20081028
  3. SEVOFLURANE [Concomitant]
     Indication: ANAESTHESIA
     Dates: start: 20081029, end: 20081029

REACTIONS (1)
  - HYPERGLYCAEMIA [None]
